FAERS Safety Report 13106296 (Version 3)
Quarter: 2019Q3

REPORT INFORMATION
  Report Type: Spontaneous
  Country: US (occurrence: US)
  Receive Date: 20170111
  Receipt Date: 20190711
  Transmission Date: 20191004
  Serious: Yes (Hospitalization)
  Sender: FDA-Public Use
  Company Number: US-ALKERMES INC.-ALK-2017-000013

PATIENT
  Age: 32 Year
  Sex: Female

DRUGS (3)
  1. ARISTADA [Suspect]
     Active Substance: ARIPIPRAZOLE LAUROXIL
     Indication: SCHIZOPHRENIA
     Dosage: 882 MG, QMO
     Route: 030
     Dates: start: 2015, end: 2017
  2. OTHER THERAPEUTIC PRODUCTS [Suspect]
     Active Substance: UNSPECIFIED INGREDIENT
     Indication: PITUITARY TUMOUR BENIGN
  3. OTHER THERAPEUTIC PRODUCTS [Concomitant]
     Active Substance: UNSPECIFIED INGREDIENT
     Indication: PRODUCT USED FOR UNKNOWN INDICATION
     Dosage: UNK

REACTIONS (9)
  - Hormone level abnormal [Unknown]
  - Hospitalisation [Recovered/Resolved]
  - Inhibitory drug interaction [Recovered/Resolved]
  - Menstrual disorder [Unknown]
  - Weight decreased [Not Recovered/Not Resolved]
  - Galactorrhoea [Unknown]
  - Type 2 diabetes mellitus [Unknown]
  - Prolactin-producing pituitary tumour [Unknown]
  - Drug ineffective [Recovered/Resolved]
